FAERS Safety Report 26174404 (Version 1)
Quarter: 2025Q4

REPORT INFORMATION
  Report Type: Spontaneous
  Country: EU (occurrence: None)
  Receive Date: 20251218
  Receipt Date: 20251218
  Transmission Date: 20260119
  Serious: Yes (Life-Threatening, Other)
  Sender: AUROBINDO
  Company Number: EU-LRB-01101735

PATIENT
  Age: 45 Year
  Sex: Female
  Weight: 90 kg

DRUGS (1)
  1. BUPIVACAINE HYDROCHLORIDE [Suspect]
     Active Substance: BUPIVACAINE HYDROCHLORIDE
     Indication: Anaesthesia
     Dosage: 20 MILLILITER
     Route: 061

REACTIONS (2)
  - Anaphylactic shock [Recovering/Resolving]
  - Papule [Recovering/Resolving]
